FAERS Safety Report 22938035 (Version 5)
Quarter: 2025Q1

REPORT INFORMATION
  Report Type: Report from Study
  Country: BR (occurrence: BR)
  Receive Date: 20230913
  Receipt Date: 20250321
  Transmission Date: 20250409
  Serious: Yes (Hospitalization, Disabling, Other)
  Sender: CELLTRION
  Company Number: BR-CELLTRION INC.-2023BR006336

PATIENT

DRUGS (13)
  1. INFLIXIMAB-DYYB [Suspect]
     Active Substance: INFLIXIMAB-DYYB
     Indication: Rheumatoid arthritis
     Route: 042
     Dates: start: 20230119
  2. INFLIXIMAB-DYYB [Suspect]
     Active Substance: INFLIXIMAB-DYYB
     Route: 042
     Dates: start: 20230424
  3. INFLIXIMAB-DYYB [Suspect]
     Active Substance: INFLIXIMAB-DYYB
     Route: 042
     Dates: start: 20240214
  4. METHOTREXATE [Concomitant]
     Active Substance: METHOTREXATE
     Indication: Rheumatoid arthritis
     Dosage: 1 CAPSULE PER WEEK (STARTED 10 YEARS AGO)
     Route: 048
  5. METHOTREXATE [Concomitant]
     Active Substance: METHOTREXATE
     Dosage: 15 MG
     Route: 048
  6. PREDNISONE [Concomitant]
     Active Substance: PREDNISONE
     Indication: Rheumatoid arthritis
     Route: 048
  7. PREDNISONE [Concomitant]
     Active Substance: PREDNISONE
     Route: 048
  8. HYDROCHLOROTHIAZIDE [Concomitant]
     Active Substance: HYDROCHLOROTHIAZIDE
     Indication: Hypertension
     Route: 048
  9. LOSARTAN [Concomitant]
     Active Substance: LOSARTAN
     Indication: Hypertension
     Route: 048
  10. METAMIZOLE SODIUM [Concomitant]
     Active Substance: METAMIZOLE SODIUM
     Indication: Pain
     Route: 048
  11. SERTRALINE [Concomitant]
     Active Substance: SERTRALINE HYDROCHLORIDE
     Indication: Product used for unknown indication
     Route: 048
  12. FOLIC ACID [Concomitant]
     Active Substance: FOLIC ACID
     Indication: Product used for unknown indication
     Route: 048
  13. VITAMIN D NOS [Concomitant]
     Active Substance: CHOLECALCIFEROL\ERGOCALCIFEROL
     Indication: Product used for unknown indication
     Route: 048

REACTIONS (17)
  - Mobility decreased [Unknown]
  - Limb operation [Unknown]
  - Postoperative wound complication [Unknown]
  - Tibia fracture [Recovered/Resolved with Sequelae]
  - Fibula fracture [Recovered/Resolved with Sequelae]
  - Stress fracture [Unknown]
  - Internal fixation of fracture [Unknown]
  - Bone debridement [Unknown]
  - Rheumatoid arthritis [Unknown]
  - Treatment delayed [Unknown]
  - Osteomyelitis [Recovered/Resolved]
  - Oedema peripheral [Unknown]
  - Pyrexia [Unknown]
  - Hypertension [Unknown]
  - Tachycardia [Unknown]
  - Product availability issue [Unknown]
  - Intentional dose omission [Unknown]

NARRATIVE: CASE EVENT DATE: 20240101
